FAERS Safety Report 12838255 (Version 1)
Quarter: 2016Q4

REPORT INFORMATION
  Report Type: Spontaneous
  Country: US (occurrence: US)
  Receive Date: 20161012
  Receipt Date: 20161012
  Transmission Date: 20170207
  Serious: No
  Sender: FDA-Public Use
  Company Number: US-MYLANLABS-2016M1025715

PATIENT
  Age: 75 Year
  Sex: Female
  Weight: 81.63 kg

DRUGS (1)
  1. ESTRADIOL TRANSDERMAL SYSTEM [Suspect]
     Active Substance: ESTRADIOL
     Indication: OESTROGEN REPLACEMENT THERAPY
     Dosage: 0.1 MG/DAY, TW
     Route: 062
     Dates: start: 2015

REACTIONS (3)
  - Cold sweat [Not Recovered/Not Resolved]
  - Anxiety [Not Recovered/Not Resolved]
  - Hirsutism [Not Recovered/Not Resolved]

NARRATIVE: CASE EVENT DATE: 201605
